FAERS Safety Report 23703720 (Version 1)
Quarter: 2024Q2

REPORT INFORMATION
  Report Type: Spontaneous
  Country: CA (occurrence: CA)
  Receive Date: 20240403
  Receipt Date: 20240403
  Transmission Date: 20240716
  Serious: Yes (Hospitalization, Other)
  Sender: FDA-Public Use
  Company Number: CA-TEVA-VS-3178021

PATIENT
  Age: 20 Year

DRUGS (7)
  1. QUETIAPINE [Suspect]
     Active Substance: QUETIAPINE
     Indication: Chronic spontaneous urticaria
     Route: 048
  2. PRAZOSIN [Concomitant]
     Active Substance: PRAZOSIN
     Indication: Product used for unknown indication
     Route: 048
  3. TROPINE BENZILATE HYDROCHLORIDE [Concomitant]
     Indication: Product used for unknown indication
     Route: 048
  4. VITAMIN D NOS [Concomitant]
     Active Substance: VITAMIN D NOS
     Indication: Product used for unknown indication
     Route: 048
  5. BREXPIPRAZOLE [Concomitant]
     Active Substance: BREXPIPRAZOLE
     Indication: Product used for unknown indication
     Route: 048
  6. CETIRIZINE [Concomitant]
     Active Substance: CETIRIZINE HYDROCHLORIDE
     Indication: Product used for unknown indication
     Dosage: DOSE FORM: NOT SPECIFIED
     Route: 065
  7. PEGINTERFERON ALFA-?2B [Concomitant]
     Indication: Product used for unknown indication
     Route: 048

REACTIONS (23)
  - Vomiting [Unknown]
  - Borderline personality disorder [Unknown]
  - Conjunctivitis [Unknown]
  - Depression [Unknown]
  - Dyspnoea [Unknown]
  - Eating disorder [Unknown]
  - Intentional self-injury [Unknown]
  - Lip swelling [Unknown]
  - Mast cell activation syndrome [Unknown]
  - Nausea [Unknown]
  - Polycystic ovarian syndrome [Unknown]
  - Polycystic ovarian syndrome [Unknown]
  - Postural orthostatic tachycardia syndrome [Unknown]
  - Product use in unapproved indication [Unknown]
  - Rash [Unknown]
  - Rash erythematous [Unknown]
  - Suicidal ideation [Unknown]
  - Swollen tongue [Unknown]
  - Tachycardia [Unknown]
  - Urticaria [Unknown]
  - Anxiety [Unknown]
  - Blister [Unknown]
  - Abdominal pain upper [Unknown]
